FAERS Safety Report 13377735 (Version 1)
Quarter: 2017Q1

REPORT INFORMATION
  Report Type: Report from Study
  Country: BE (occurrence: BE)
  Receive Date: 20170328
  Receipt Date: 20170328
  Transmission Date: 20170429
  Serious: No
  Sender: FDA-Public Use
  Company Number: BE-JNJFOC-20170322439

PATIENT
  Age: 30 Year
  Sex: Female
  Weight: 70 kg

DRUGS (3)
  1. USTEKINUMAB [Suspect]
     Active Substance: USTEKINUMAB
     Indication: CROHN^S DISEASE
     Dosage: 1 BOTTLE ONCE
     Route: 042
     Dates: start: 20170123
  2. IMODIUM [Concomitant]
     Active Substance: LOPERAMIDE HYDROCHLORIDE
     Route: 065
  3. DEXPANTHENOL. [Concomitant]
     Active Substance: DEXPANTHENOL
     Route: 065

REACTIONS (2)
  - Antinuclear antibody positive [Unknown]
  - Arthralgia [Recovered/Resolved]

NARRATIVE: CASE EVENT DATE: 20170125
